FAERS Safety Report 7880332-5 (Version None)
Quarter: 2011Q4

REPORT INFORMATION
  Report Type: 
  Country: None (occurrence: None)
  Receive Date: 20111101
  Receipt Date: 20111027
  Transmission Date: 20120403
  Serious: Yes (Hospitalization, Disabling)
  Sender: FDA-Public Use
  Company Number: US-B.I. PHARMACEUTICALS,INC./RIDGEFIELD-2011-BP-25169BP

PATIENT
  Sex: Female

DRUGS (8)
  1. ADVAIR DISKUS 100/50 [Concomitant]
     Indication: CHRONIC OBSTRUCTIVE PULMONARY DISEASE
  2. PREDNISONE [Concomitant]
     Indication: CHRONIC OBSTRUCTIVE PULMONARY DISEASE
  3. VASOTEC [Concomitant]
     Indication: HYPERTENSION
  4. WARFARIN [Concomitant]
     Indication: DEEP VEIN THROMBOSIS
  5. CALCIUM [Concomitant]
     Indication: MINERAL SUPPLEMENTATION
  6. SPIRIVA [Suspect]
     Indication: CHRONIC OBSTRUCTIVE PULMONARY DISEASE
     Dosage: 18 MCG
     Route: 055
     Dates: start: 20050101
  7. NORVASC [Concomitant]
     Indication: HYPERTENSION
  8. ALBUTEROL [Concomitant]
     Indication: CHRONIC OBSTRUCTIVE PULMONARY DISEASE

REACTIONS (3)
  - DISABILITY [None]
  - CHRONIC OBSTRUCTIVE PULMONARY DISEASE [None]
  - LUNG INFECTION [None]
